FAERS Safety Report 11920173 (Version 3)
Quarter: 2016Q2

REPORT INFORMATION
  Report Type: Spontaneous
  Country: US (occurrence: US)
  Receive Date: 20160115
  Receipt Date: 20160406
  Transmission Date: 20160815
  Serious: Yes (Other)
  Sender: FDA-Public Use
  Company Number: US-BAYER-2016-006558

PATIENT
  Age: 22 Year
  Sex: Female
  Weight: 66.21 kg

DRUGS (1)
  1. MIRENA [Suspect]
     Active Substance: LEVONORGESTREL
     Indication: CONTRACEPTION
     Dosage: 20 MCG/24HR, CONT
     Route: 015
     Dates: start: 201410, end: 20151228

REACTIONS (11)
  - Procedural haemorrhage [None]
  - Vaginal haemorrhage [Recovered/Resolved]
  - Cervical dysplasia [None]
  - Amenorrhoea [Recovered/Resolved]
  - Complication of device insertion [None]
  - Abdominal pain lower [Recovered/Resolved]
  - Coital bleeding [None]
  - Device issue [None]
  - Genital haemorrhage [None]
  - Genital haemorrhage [None]
  - Dizziness [None]

NARRATIVE: CASE EVENT DATE: 2014
